FAERS Safety Report 9340443 (Version 1)
Quarter: 2013Q2

REPORT INFORMATION
  Report Type: Spontaneous
  Country: US (occurrence: US)
  Receive Date: 20130610
  Receipt Date: 20130610
  Transmission Date: 20140414
  Serious: No
  Sender: FDA-Public Use
  Company Number: US-MUTUAL PHARMACEUTICAL COMPANY, INC.-DXCY20120017

PATIENT
  Age: 75 Year
  Sex: Female

DRUGS (6)
  1. DOXYCYCLINE TABLETS [Suspect]
     Route: 048
     Dates: start: 201211, end: 201211
  2. ATIVAN [Concomitant]
     Route: 048
  3. EVISTA [Concomitant]
     Route: 048
  4. CALCIUM [Concomitant]
     Route: 048
  5. VITAMIN C [Concomitant]
     Route: 048
  6. VITAMIN D [Concomitant]
     Route: 048

REACTIONS (1)
  - Abdominal pain upper [Recovered/Resolved]
